FAERS Safety Report 19134517 (Version 1)
Quarter: 2021Q2

REPORT INFORMATION
  Report Type: Report from Study
  Country: IN (occurrence: IN)
  Receive Date: 20210414
  Receipt Date: 20210414
  Transmission Date: 20210717
  Serious: Yes (Other)
  Sender: FDA-Public Use
  Company Number: NVSC2021IN076202

PATIENT
  Age: 62 Year
  Sex: Male

DRUGS (1)
  1. TAURITMO [Suspect]
     Active Substance: MIDOSTAURIN
     Indication: ACUTE MYELOID LEUKAEMIA
     Dosage: 50 MG, BID
     Route: 065
     Dates: start: 20210219, end: 202102

REACTIONS (1)
  - Blast cell count increased [Not Recovered/Not Resolved]

NARRATIVE: CASE EVENT DATE: 202102
